FAERS Safety Report 7252356-2 (Version None)
Quarter: 2011Q1

REPORT INFORMATION
  Report Type: 
  Country: None (occurrence: None)
  Receive Date: 20110129
  Receipt Date: 20100312
  Transmission Date: 20110831
  Serious: No
  Sender: FDA-Public Use
  Company Number: PR-ABBOTT-10P-131-0632105-00

PATIENT
  Sex: Female
  Weight: 84.444 kg

DRUGS (7)
  1. HUMIRA [Suspect]
     Indication: RHEUMATOID ARTHRITIS
     Dosage: 1 HUMIRA PEN EVERY 15 DAYS
     Route: 058
     Dates: start: 20100226
  2. KLONOPIN [Concomitant]
     Indication: SLEEP DISORDER THERAPY
     Route: 048
  3. PERCOCET [Concomitant]
     Indication: PAIN
     Dosage: 20/1300 MG 2 TABS IN THE AM AND 2 TABS IN PM
     Route: 048
     Dates: start: 20090101
  4. NEURONTIN [Concomitant]
     Indication: FIBROMYALGIA
     Route: 048
  5. RELAFEN [Concomitant]
     Indication: RHEUMATOID ARTHRITIS
     Route: 048
  6. RELAFEN [Concomitant]
     Indication: FIBROMYALGIA
  7. TORADOL [Concomitant]
     Indication: PAIN
     Route: 048

REACTIONS (5)
  - INJECTION SITE WARMTH [None]
  - INJECTION SITE ERYTHEMA [None]
  - INJECTION SITE REACTION [None]
  - INJECTION SITE PRURITUS [None]
  - INJECTION SITE SWELLING [None]
